FAERS Safety Report 7052025-8 (Version None)
Quarter: 2010Q4

REPORT INFORMATION
  Report Type: 
  Country: None (occurrence: None)
  Receive Date: 20101019
  Receipt Date: 20100917
  Transmission Date: 20110411
  Serious: Yes (Other)
  Sender: FDA-Public Use
  Company Number: US-BAYER-201027042NA

PATIENT
  Age: 27 Year
  Sex: Female
  Weight: 72 kg

DRUGS (6)
  1. YAZ [Suspect]
     Indication: CONTRACEPTION
     Route: 048
     Dates: start: 20080522, end: 20081010
  2. YASMIN [Suspect]
     Indication: PRODUCT USED FOR UNKNOWN INDICATION
     Route: 048
     Dates: start: 20020101, end: 20060101
  3. ANTIBIOTICS [Concomitant]
  4. MIGRAINE MEDICATION [Concomitant]
     Indication: MIGRAINE
  5. NSAIDS [Concomitant]
  6. NITROFURANTOIN MACRO [Concomitant]
     Indication: URINARY TRACT INFECTION
     Dosage: TOTAL DAILY DOSE: 100 MG  UNIT DOSE: 100 MG
     Route: 048
     Dates: start: 20080909, end: 20080916

REACTIONS (5)
  - ABDOMINAL PAIN UPPER [None]
  - CHOLECYSTITIS CHRONIC [None]
  - CHOLELITHIASIS [None]
  - NAUSEA [None]
  - VOMITING [None]
